FAERS Safety Report 4309465-7 (Version None)
Quarter: 2004Q1

REPORT INFORMATION
  Report Type: 
  Country: None (occurrence: None)
  Receive Date: 20040301
  Receipt Date: 20040217
  Transmission Date: 20041129
  Serious: Yes (Other)
  Sender: FDA-Public Use
  Company Number: 2004011125

PATIENT
  Sex: Male

DRUGS (2)
  1. ZYRTEC [Suspect]
     Indication: HYPERSENSITIVITY
     Dosage: 10 MG (DAILY), ORAL
     Route: 048
     Dates: start: 20031206, end: 20031207
  2. TEMAZEPAM [Concomitant]

REACTIONS (1)
  - INSOMNIA [None]
